FAERS Safety Report 7378003-7 (Version None)
Quarter: 2011Q1

REPORT INFORMATION
  Report Type: 
  Country: None (occurrence: None)
  Receive Date: 20110328
  Receipt Date: 20110323
  Transmission Date: 20110831
  Serious: Yes (Death, Other)
  Sender: FDA-Public Use
  Company Number: GB-PFIZER INC-2011018291

PATIENT
  Age: 72 Year
  Sex: Male

DRUGS (3)
  1. OMEPRAZOLE [Concomitant]
     Indication: GASTRIC ULCER
     Dosage: 20 MG, 1X/DAY IN THE MORNING
     Route: 048
  2. VFEND [Suspect]
     Indication: PROPHYLAXIS
     Dosage: 200 MG, 2X/DAY
     Route: 048
     Dates: start: 20110121, end: 20110125
  3. MEROPENEM [Concomitant]
     Indication: SEPSIS
     Dosage: 1 G, 2X/DAY
     Route: 042

REACTIONS (4)
  - HALLUCINATION [None]
  - CONFUSIONAL STATE [None]
  - AGITATION [None]
  - DIFFUSE LARGE B-CELL LYMPHOMA [None]
